FAERS Safety Report 8357270-7 (Version None)
Quarter: 2012Q2

REPORT INFORMATION
  Report Type: 
  Country: None (occurrence: None)
  Receive Date: 20120514
  Receipt Date: 20120508
  Transmission Date: 20120825
  Serious: Yes (Other)
  Sender: FDA-Public Use
  Company Number: PHEH2012US008762

PATIENT
  Age: 80 Year
  Sex: Female

DRUGS (1)
  1. RECLAST [Suspect]
     Indication: OSTEOPOROSIS
     Dosage: UNK UKN, UNK
     Route: 042
     Dates: start: 20120223

REACTIONS (14)
  - OCULAR NEOPLASM [None]
  - INFLUENZA LIKE ILLNESS [None]
  - ANKLE FRACTURE [None]
  - SYSTEMIC LUPUS ERYTHEMATOSUS [None]
  - ASBESTOSIS [None]
  - NECK MASS [None]
  - COUGH [None]
  - SNEEZING [None]
  - FIBROMYALGIA [None]
  - PARAESTHESIA [None]
  - PROCEDURAL PAIN [None]
  - HEADACHE [None]
  - MUSCLE SPASMS [None]
  - MALAISE [None]
